FAERS Safety Report 10682013 (Version 1)
Quarter: 2014Q4

REPORT INFORMATION
  Report Type: Spontaneous
  Country: KR (occurrence: KR)
  Receive Date: 20141230
  Receipt Date: 20141230
  Transmission Date: 20150529
  Serious: Yes (Other)
  Sender: FDA-Public Use
  Company Number: KR-BAYER-2014-188639

PATIENT
  Sex: Female

DRUGS (2)
  1. NEXAVAR [Suspect]
     Active Substance: SORAFENIB
     Indication: THYROID CANCER
     Dosage: 200 MG, BID
     Route: 048
  2. NEXAVAR [Suspect]
     Active Substance: SORAFENIB
     Indication: THYROID CANCER
     Dosage: 400MG MORNING AND 200MG IN EVENING
     Route: 048

REACTIONS (8)
  - Metastases to lymph nodes [None]
  - Urine output increased [None]
  - Blister [Not Recovered/Not Resolved]
  - Skin exfoliation [None]
  - Swelling face [None]
  - Gait disturbance [Not Recovered/Not Resolved]
  - Dry mouth [None]
  - Metastases to lung [None]
